FAERS Safety Report 7493818-2 (Version None)
Quarter: 2011Q2

REPORT INFORMATION
  Report Type: 
  Country: None (occurrence: None)
  Receive Date: 20110513
  Receipt Date: 20110505
  Transmission Date: 20111010
  Serious: Yes (Death, Hospitalization)
  Sender: FDA-Public Use
  Company Number: TRP_07725_2011

PATIENT
  Age: 84 Year
  Sex: Male

DRUGS (2)
  1. AMPHOTERICIN B [Suspect]
     Indication: FUNGAEMIA
     Dosage: (DF)
  2. VORICONAZOLE [Concomitant]

REACTIONS (3)
  - DRUG TOLERANCE [None]
  - DRUG INEFFECTIVE [None]
  - MULTI-ORGAN FAILURE [None]
